FAERS Safety Report 9791663 (Version 1)
Quarter: 2014Q1

REPORT INFORMATION
  Report Type: Spontaneous
  Country: US (occurrence: US)
  Receive Date: 20140102
  Receipt Date: 20140102
  Transmission Date: 20141002
  Serious: Yes (Other)
  Sender: FDA-Public Use
  Company Number: US-B.I. PHARMACEUTICALS,INC./RIDGEFIELD-2013-BI-44001BP

PATIENT
  Age: 52 Year
  Sex: Male
  Weight: 61 kg

DRUGS (3)
  1. SPIRIVA [Suspect]
     Indication: CHRONIC OBSTRUCTIVE PULMONARY DISEASE
     Dosage: 18 MCG
     Route: 055
     Dates: start: 201307, end: 20131126
  2. PULMICORT - 90 MCG [Concomitant]
     Indication: CHRONIC OBSTRUCTIVE PULMONARY DISEASE
     Dosage: 4 PUF
     Dates: start: 201307, end: 20131126
  3. SSRI [Concomitant]
     Dates: start: 20131119, end: 20131126

REACTIONS (11)
  - Suicidal ideation [Recovered/Resolved]
  - Post-traumatic stress disorder [Not Recovered/Not Resolved]
  - Depression [Not Recovered/Not Resolved]
  - Anxiety disorder [Recovered/Resolved]
  - Mental disorder [Recovered/Resolved]
  - Hallucination, visual [Recovered/Resolved]
  - Insomnia [Recovered/Resolved]
  - Thyroid neoplasm [Not Recovered/Not Resolved]
  - Lymphadenopathy [Not Recovered/Not Resolved]
  - Tinnitus [Not Recovered/Not Resolved]
  - Abnormal loss of weight [Recovered/Resolved]
